FAERS Safety Report 14804578 (Version 2)
Quarter: 2018Q2

REPORT INFORMATION
  Report Type: Spontaneous
  Country: DK (occurrence: DK)
  Receive Date: 20180425
  Receipt Date: 20180517
  Transmission Date: 20180711
  Serious: Yes (Disabling)
  Sender: FDA-Public Use
  Company Number: DK-SA-2016SA233073

PATIENT
  Sex: Female

DRUGS (3)
  1. MYOZYME [Suspect]
     Active Substance: ALGLUCOSIDASE ALFA
     Indication: GLYCOGEN STORAGE DISEASE TYPE II
     Dosage: DOUBLE DOSE
     Route: 041
     Dates: start: 20161214
  2. MYOZYME [Suspect]
     Active Substance: ALGLUCOSIDASE ALFA
     Indication: GLYCOGEN STORAGE DISEASE TYPE II
     Route: 041
  3. MYOZYME [Suspect]
     Active Substance: ALGLUCOSIDASE ALFA
     Indication: GLYCOGEN STORAGE DISEASE TYPE II
     Dosage: DOUBLE DOSE
     Route: 041
     Dates: start: 201509

REACTIONS (14)
  - Wheelchair user [Unknown]
  - Hypokinesia [Unknown]
  - Drug ineffective [Unknown]
  - Pyrexia [Unknown]
  - Sensation of foreign body [Recovering/Resolving]
  - Vomiting [Unknown]
  - Mobility decreased [Unknown]
  - Influenza like illness [Unknown]
  - Dyspnoea [Recovering/Resolving]
  - Infusion related reaction [Unknown]
  - Hypersensitivity [Recovering/Resolving]
  - Respiratory disorder [Unknown]
  - Back pain [Unknown]
  - Off label use [Unknown]

NARRATIVE: CASE EVENT DATE: 2011
